FAERS Safety Report 16346318 (Version 6)
Quarter: 2019Q4

REPORT INFORMATION
  Report Type: Spontaneous
  Country: US (occurrence: US)
  Receive Date: 20190523
  Receipt Date: 20191120
  Transmission Date: 20200122
  Serious: No
  Sender: FDA-Public Use
  Company Number: US-PFIZER INC-2019217294

PATIENT
  Age: 73 Year
  Sex: Female
  Weight: 62.59 kg

DRUGS (4)
  1. PREMARIN [Suspect]
     Active Substance: ESTROGENS, CONJUGATED
     Indication: UTERINE DISORDER
     Dosage: UNK UNK, WEEKLY [3 PEA SIZE SMEARS PER/WEEK]
     Dates: start: 201806
  2. PREMARIN [Suspect]
     Active Substance: ESTROGENS, CONJUGATED
     Dosage: UNK, WEEKLY [2 SMEARS PER WEEK]
     Dates: start: 2018
  3. PREMARIN [Suspect]
     Active Substance: ESTROGENS, CONJUGATED
     Dosage: UNK, WEEKLY [1 SMEAR PER WEEK]
     Dates: start: 201806, end: 20190312
  4. PREMARIN [Suspect]
     Active Substance: ESTROGENS, CONJUGATED
     Indication: URINARY TRACT INFECTION
     Dosage: UNK

REACTIONS (13)
  - Drug hypersensitivity [Unknown]
  - Vulvovaginal burning sensation [Unknown]
  - Micturition urgency [Unknown]
  - Off label use [Unknown]
  - Insomnia [Unknown]
  - Condition aggravated [Unknown]
  - Stress [Unknown]
  - Product use in unapproved indication [Unknown]
  - Pruritus [Unknown]
  - Burning sensation [Unknown]
  - Muscle spasms [Unknown]
  - Peripheral swelling [Unknown]
  - Restless legs syndrome [Unknown]

NARRATIVE: CASE EVENT DATE: 201806
